FAERS Safety Report 5443939-0 (Version None)
Quarter: 2007Q3

REPORT INFORMATION
  Report Type: 
  Country: None (occurrence: None)
  Receive Date: 20070731
  Receipt Date: 20070607
  Transmission Date: 20080115
  Serious: No
  Sender: FDA-Public Use
  Company Number: US200706001298

PATIENT
  Age: 85 Year
  Sex: Male

DRUGS (6)
  1. BYETTA [Suspect]
     Indication: TYPE 2 DIABETES MELLITUS
     Dosage: 5 UG, 2/D, SUBCUTANEOUS
     Route: 058
     Dates: start: 20070501, end: 20070605
  2. EXENATIDE PEN, DISPOSABLE DEVICE (EXENATIDE PEN) [Concomitant]
  3. PROCRIT [Concomitant]
  4. ANTIHYPERTENSIVES [Concomitant]
  5. VITAMINS NOS (VITAMINS NOS) [Concomitant]
  6. LYRICA [Concomitant]

REACTIONS (2)
  - ARTHRALGIA [None]
  - NEUROPATHY PERIPHERAL [None]
